FAERS Safety Report 15185934 (Version 1)
Quarter: 2018Q3

REPORT INFORMATION
  Report Type: Report from Study
  Country: US (occurrence: US)
  Receive Date: 20180723
  Receipt Date: 20180723
  Transmission Date: 20181010
  Serious: No
  Sender: FDA-Public Use
  Company Number: US-EXELIXIS-CABO-18013534

PATIENT
  Age: 67 Year
  Sex: Male

DRUGS (1)
  1. CABOMETYX [Suspect]
     Active Substance: CABOZANTINIB S-MALATE
     Indication: LARYNGEAL CANCER
     Dosage: 60 MG, QD
     Route: 048

REACTIONS (5)
  - Palmar-plantar erythrodysaesthesia syndrome [Recovering/Resolving]
  - Fatigue [Unknown]
  - Ulcer [Unknown]
  - Haematemesis [Unknown]
  - Off label use [Unknown]

NARRATIVE: CASE EVENT DATE: 20180407
